FAERS Safety Report 8506722-5 (Version None)
Quarter: 2012Q3

REPORT INFORMATION
  Report Type: 
  Country: None (occurrence: None)
  Receive Date: 20120712
  Receipt Date: 20120710
  Transmission Date: 20120928
  Serious: No
  Sender: FDA-Public Use
  Company Number: US-B.I. PHARMACEUTICALS,INC./RIDGEFIELD-2012-BP-12571BP

PATIENT
  Sex: Male
  Weight: 72.57 kg

DRUGS (9)
  1. PRADAXA [Suspect]
     Indication: CEREBROVASCULAR ACCIDENT PROPHYLAXIS
     Dosage: 300 MG
     Route: 048
     Dates: start: 20101127
  2. PLAVIX [Concomitant]
     Indication: STENT PLACEMENT
     Dosage: 75 MG
     Dates: start: 20120101
  3. ASPIRIN [Concomitant]
  4. CLOPIDOGREL [Concomitant]
  5. OMEPRAZOLE [Concomitant]
     Indication: GASTROOESOPHAGEAL REFLUX DISEASE
     Dosage: 20 MG
     Dates: start: 20110228
  6. LEVOTHYROXINE SODIUM [Concomitant]
     Indication: HYPOTHYROIDISM
     Dosage: 25 MCG
     Dates: start: 20090720
  7. PROPAFENONE HCL [Concomitant]
     Indication: ATRIAL FIBRILLATION
     Dosage: 450 MG
     Dates: start: 20110318
  8. PRADAXA [Suspect]
     Indication: ATRIAL FIBRILLATION
  9. ATENOLOL [Concomitant]
     Indication: TACHYCARDIA
     Dosage: 100 MG
     Dates: start: 20070507

REACTIONS (3)
  - DYSPNOEA [None]
  - ASTHENIA [None]
  - FATIGUE [None]
